APPROVED DRUG PRODUCT: SELEGILINE HYDROCHLORIDE
Active Ingredient: SELEGILINE HYDROCHLORIDE
Strength: 5MG
Dosage Form/Route: TABLET;ORAL
Application: A074866 | Product #001
Applicant: NOVITIUM PHARMA LLC
Approved: Nov 26, 1997 | RLD: No | RS: No | Type: DISCN